FAERS Safety Report 9059494 (Version 2)
Quarter: 2022Q1

REPORT INFORMATION
  Report Type: Report from Study
  Country: US (occurrence: US)
  Receive Date: 20130211
  Receipt Date: 20220330
  Transmission Date: 20220423
  Serious: Yes (Hospitalization)
  Sender: FDA-Public Use
  Company Number: US-SHIRE-SPV1-2008-02237

PATIENT
  Age: 6 Year
  Sex: Male
  Weight: 20 kg

DRUGS (6)
  1. IDURSULFASE [Suspect]
     Active Substance: IDURSULFASE
     Indication: Mucopolysaccharidosis II
     Dosage: 0.5 MILLIGRAM/KILOGRAM, 1/WEEK
     Route: 042
     Dates: start: 20070509
  2. IDURSULFASE [Suspect]
     Active Substance: IDURSULFASE
     Dosage: UNK
     Route: 042
     Dates: start: 20050607, end: 20060111
  3. IDURSULFASE [Suspect]
     Active Substance: IDURSULFASE
     Dosage: 0.61 MILLIGRAM/KILOGRAM, 1/WEEK
     Route: 042
     Dates: start: 20061110
  4. IDURSULFASE [Suspect]
     Active Substance: IDURSULFASE
     Dosage: 0.31 MILLIGRAM/KILOGRAM, 1/WEEK
     Route: 042
     Dates: start: 20070102
  5. DIPHENHYDRAMINE [Concomitant]
     Active Substance: DIPHENHYDRAMINE
     Indication: Product used for unknown indication
     Dosage: 25 MG, 1X/WEEK
     Route: 042
     Dates: start: 20070206
  6. UNSPECIFIED INGREDIENT [Concomitant]
     Active Substance: UNSPECIFIED INGREDIENT
     Indication: Product used for unknown indication
     Dosage: 500 IU, 1X/WEEK
     Route: 042
     Dates: start: 20061206

REACTIONS (1)
  - Epiglottic mass [Recovered/Resolved]

NARRATIVE: CASE EVENT DATE: 20080930
